FAERS Safety Report 20681800 (Version 1)
Quarter: 2022Q2

REPORT INFORMATION
  Report Type: Spontaneous
  Country: US (occurrence: US)
  Receive Date: 20220407
  Receipt Date: 20220407
  Transmission Date: 20220721
  Serious: No
  Sender: FDA-Public Use
  Company Number: US-BRISTOL-MYERS SQUIBB COMPANY-2022-013453

PATIENT
  Age: 82 Year
  Sex: Male

DRUGS (1)
  1. REVLIMID [Suspect]
     Active Substance: LENALIDOMIDE
     Indication: Plasma cell myeloma
     Dosage: DOSING CYCLE IS 21 DAYS ON MEDICATION, 7 DAYS OFF
     Route: 048
     Dates: start: 20210326

REACTIONS (2)
  - Rash [Unknown]
  - Prescribed underdose [Unknown]
